FAERS Safety Report 15568421 (Version 1)
Quarter: 2018Q4

REPORT INFORMATION
  Report Type: Spontaneous
  Country: IT (occurrence: IT)
  Receive Date: 20181031
  Receipt Date: 20181031
  Transmission Date: 20190205
  Serious: Yes (Other)
  Sender: FDA-Public Use
  Company Number: IT-ROCHE-2205980

PATIENT
  Sex: Male

DRUGS (3)
  1. BENDAMUSTINE [Suspect]
     Active Substance: BENDAMUSTINE
     Indication: B-CELL LYMPHOMA REFRACTORY
     Route: 065
     Dates: end: 201810
  2. GAZYVARO [Suspect]
     Active Substance: OBINUTUZUMAB
     Indication: B-CELL LYMPHOMA REFRACTORY
     Route: 042
  3. IDELALISIB [Concomitant]
     Active Substance: IDELALISIB
     Indication: B-CELL LYMPHOMA REFRACTORY
     Route: 065
     Dates: start: 20181003

REACTIONS (4)
  - Off label use [Unknown]
  - Neutropenia [Unknown]
  - Pulmonary toxicity [Unknown]
  - Intentional product use issue [Unknown]
